FAERS Safety Report 4426542-0 (Version None)
Quarter: 2004Q3

REPORT INFORMATION
  Report Type: 
  Country: None (occurrence: None)
  Receive Date: 20040816
  Receipt Date: 20040802
  Transmission Date: 20050211
  Serious: Yes (Hospitalization)
  Sender: FDA-Public Use
  Company Number: US-JNJFOC-20040403477

PATIENT
  Sex: Male

DRUGS (14)
  1. DURAGESIC [Suspect]
     Route: 062
     Dates: start: 20030411
  2. DURAGESIC [Suspect]
     Route: 062
     Dates: start: 20030411
  3. DURAGESIC [Suspect]
     Route: 062
     Dates: start: 20030411
  4. ASPIRIN [Concomitant]
     Indication: CORONARY ARTERY DISEASE
     Route: 049
  5. PLAVIX [Concomitant]
     Route: 049
  6. CARDIZEM CD [Concomitant]
     Route: 049
  7. COLACE [Concomitant]
     Route: 049
  8. LASIX [Concomitant]
     Route: 049
  9. SYNTHROID [Concomitant]
  10. ZESTRIL [Concomitant]
  11. TOPROL-XL [Concomitant]
  12. ZOCOR [Concomitant]
  13. COUMADIN [Concomitant]
  14. CELEBREX [Concomitant]
     Route: 049

REACTIONS (8)
  - ANXIETY [None]
  - DRY MOUTH [None]
  - DYSPNOEA [None]
  - FATIGUE [None]
  - HEART RATE INCREASED [None]
  - HYPERHIDROSIS [None]
  - INSOMNIA [None]
  - PALPITATIONS [None]
